FAERS Safety Report 16735437 (Version 3)
Quarter: 2020Q1

REPORT INFORMATION
  Report Type: Spontaneous
  Country: US (occurrence: US)
  Receive Date: 20190823
  Receipt Date: 20200204
  Transmission Date: 20200409
  Serious: Yes (Hospitalization, Other)
  Sender: FDA-Public Use
  Company Number: US-GENERICUS, INC.-2019GNR00012

PATIENT
  Sex: Female

DRUGS (1)
  1. TOBRAMYCIN. [Suspect]
     Active Substance: TOBRAMYCIN
     Indication: CYSTIC FIBROSIS
     Dosage: 300 MG, 2X/DAY (EVERY 12 HOURS) DAY 1-28 EVERY OTHER MONTH
     Dates: start: 2019

REACTIONS (12)
  - Haemoptysis [Unknown]
  - Pneumonia [Unknown]
  - Fall [Unknown]
  - Lower limb fracture [Unknown]
  - Throat irritation [Unknown]
  - Dysphonia [Unknown]
  - Fatigue [Unknown]
  - Oropharyngeal pain [Unknown]
  - Bronchitis [Unknown]
  - Abdominal discomfort [Unknown]
  - Headache [Unknown]
  - Nausea [Unknown]

NARRATIVE: CASE EVENT DATE: 2019
